FAERS Safety Report 25134540 (Version 1)
Quarter: 2025Q1

REPORT INFORMATION
  Report Type: Spontaneous
  Country: US (occurrence: US)
  Receive Date: 20250328
  Receipt Date: 20250328
  Transmission Date: 20250408
  Serious: No
  Sender: ELI LILLY AND COMPANY
  Company Number: US-ELI_LILLY_AND_COMPANY-US202503022633

PATIENT
  Sex: Female

DRUGS (1)
  1. LYUMJEV [Suspect]
     Active Substance: INSULIN LISPRO-AABC
     Indication: Product used for unknown indication
     Route: 058

REACTIONS (11)
  - Blood glucose increased [Unknown]
  - Back pain [Unknown]
  - Trigger finger [Unknown]
  - Arthralgia [Unknown]
  - Fall [Unknown]
  - Pain in extremity [Unknown]
  - Muscle spasms [Unknown]
  - Hypoaesthesia [Unknown]
  - Paraesthesia [Unknown]
  - Blood potassium decreased [Unknown]
  - Lipodystrophy acquired [Unknown]
